FAERS Safety Report 6315462-2 (Version None)
Quarter: 2009Q3

REPORT INFORMATION
  Report Type: 
  Country: None (occurrence: None)
  Receive Date: 20090819
  Receipt Date: 20090805
  Transmission Date: 20100115
  Serious: Yes (Other)
  Sender: FDA-Public Use
  Company Number: US-MYLANLABS-2009S1013856

PATIENT
  Age: 17 Year
  Sex: Female

DRUGS (5)
  1. FUROSEMIDE [Suspect]
     Indication: FLUID RETENTION
  2. LIDOCAINE 0.5% W/ EPINEPHRINE 1:200,000 [Suspect]
     Route: 008
  3. LIDOCAINE 0.5% W/ EPINEPHRINE 1:200,000 [Suspect]
     Route: 008
  4. DIGOXIN [Concomitant]
     Indication: FLUID RETENTION
  5. FENTANYL [Concomitant]
     Indication: GENERAL ANAESTHESIA
     Route: 008

REACTIONS (6)
  - BRADYCARDIA FOETAL [None]
  - CAESAREAN SECTION [None]
  - DRUG EXPOSURE DURING PREGNANCY [None]
  - HYPOTENSION [None]
  - MATERNAL DRUGS AFFECTING FOETUS [None]
  - TACHYCARDIA [None]
